FAERS Safety Report 20438054 (Version 4)
Quarter: 2022Q2

REPORT INFORMATION
  Report Type: Spontaneous
  Country: JP (occurrence: JP)
  Receive Date: 20220207
  Receipt Date: 20220419
  Transmission Date: 20220721
  Serious: Yes (Death, Other)
  Sender: FDA-Public Use
  Company Number: JP-MSD-M2022-03785

PATIENT
  Age: 77 Year
  Sex: Male
  Weight: 51 kg

DRUGS (7)
  1. MOLNUPIRAVIR [Suspect]
     Active Substance: MOLNUPIRAVIR
     Indication: COVID-19 treatment
     Dosage: 800 MILLIGRAM, BID(IN THE MORNING AND EVENING)
     Route: 048
     Dates: start: 20220201, end: 20220201
  2. CLOPIDOGREL BISULFATE [Concomitant]
     Active Substance: CLOPIDOGREL BISULFATE
     Indication: Cerebral infarction
     Dosage: 50 MILLIGRAM, QD
     Route: 048
     Dates: start: 20210218, end: 20220201
  3. NEXIUM [Concomitant]
     Active Substance: ESOMEPRAZOLE MAGNESIUM
     Indication: Gastritis
     Dosage: 20 MILLIGRAM, QD
     Route: 048
     Dates: start: 20210218, end: 20220201
  4. FLUNITRAZEPAM [Concomitant]
     Active Substance: FLUNITRAZEPAM
     Indication: Insomnia
     Dosage: 1 MILLIGRAM, QD
     Route: 048
     Dates: start: 20210218, end: 20220201
  5. DROXIDOPA [Concomitant]
     Active Substance: DROXIDOPA
     Indication: Hypotension
     Dosage: 20 MILLIGRAM, QD
     Route: 048
     Dates: start: 20210218, end: 20220201
  6. NICORANDIL [Concomitant]
     Active Substance: NICORANDIL
     Indication: Angina pectoris
     Dosage: 5 MILLIGRAM, TID
     Route: 048
     Dates: start: 20210218, end: 20220201
  7. METOCLOPRAMIDE [Concomitant]
     Active Substance: METOCLOPRAMIDE
     Indication: Gastroenteritis
     Dosage: 5 MILLIGRAM, TID
     Route: 048
     Dates: start: 20210218, end: 20220201

REACTIONS (1)
  - Cerebral haemorrhage [Fatal]

NARRATIVE: CASE EVENT DATE: 20220202
